FAERS Safety Report 7812963-2 (Version None)
Quarter: 2011Q4

REPORT INFORMATION
  Report Type: 
  Country: None (occurrence: None)
  Receive Date: 20111013
  Receipt Date: 20111010
  Transmission Date: 20120403
  Serious: Yes (Other)
  Sender: FDA-Public Use
  Company Number: BR-PFIZER INC-2011242144

PATIENT
  Age: 46 Year
  Sex: Female

DRUGS (2)
  1. LYRICA [Suspect]
     Indication: FIBROMYALGIA
     Dosage: 75 MG (ONE CAPSULE), 3X/DAY
     Route: 048
     Dates: start: 20110419
  2. CYMBALTA [Concomitant]
     Dosage: UNK

REACTIONS (3)
  - OEDEMA PERIPHERAL [None]
  - SWELLING FACE [None]
  - MUSCLE RIGIDITY [None]
